FAERS Safety Report 6184772-4 (Version None)
Quarter: 2009Q2

REPORT INFORMATION
  Report Type: 
  Country: None (occurrence: None)
  Receive Date: 20090508
  Receipt Date: 20090504
  Transmission Date: 20091009
  Serious: Yes (Death, Hospitalization)
  Sender: FDA-Public Use
  Company Number: US-CELGENEUS-163-50794-09032204

PATIENT
  Sex: Male
  Weight: 78.2 kg

DRUGS (9)
  1. VIDAZA [Suspect]
     Route: 051
     Dates: start: 20090218, end: 20090226
  2. MYLOTARG [Suspect]
     Indication: DRUG USE FOR UNKNOWN INDICATION
  3. ACETAMINOPHEN [Concomitant]
     Indication: BONE PAIN
     Dosage: 300-30MG
     Route: 048
     Dates: start: 20090225, end: 20090419
  4. LIPITOR [Concomitant]
     Route: 048
     Dates: start: 20090203, end: 20090419
  5. XALATAN [Concomitant]
     Indication: EYE PAIN
     Route: 047
     Dates: start: 20090203, end: 20090419
  6. PROSCAR [Concomitant]
     Route: 048
     Dates: start: 20090203, end: 20090419
  7. CORTEF [Concomitant]
     Indication: INFLAMMATION
     Route: 048
     Dates: start: 20090203, end: 20090419
  8. CORTEF [Concomitant]
     Route: 048
     Dates: start: 20090203
  9. PROCRIT [Concomitant]
     Indication: PANCYTOPENIA
     Dosage: 40,000 U/ML
     Route: 058
     Dates: start: 20090203, end: 20090419

REACTIONS (3)
  - FEBRILE NEUTROPENIA [None]
  - MYELOID LEUKAEMIA [None]
  - PNEUMONIA [None]
